FAERS Safety Report 8097431-8 (Version None)
Quarter: 2012Q1

REPORT INFORMATION
  Report Type: 
  Country: None (occurrence: None)
  Receive Date: 20120128
  Receipt Date: 20110711
  Transmission Date: 20120608
  Serious: No
  Sender: FDA-Public Use
  Company Number: US-ABBOTT-11P-163-0838085-00

PATIENT
  Age: 48 Year
  Sex: Female

DRUGS (7)
  1. HUMIRA [Suspect]
     Indication: RHEUMATOID ARTHRITIS
     Dates: start: 20090701
  2. TRAZODONE HCL [Concomitant]
     Indication: INSOMNIA
     Dosage: AT BEDTIME
  3. PREDNISONE TAB [Concomitant]
     Indication: RHEUMATOID ARTHRITIS
  4. ALENDRONATE SODIUM [Concomitant]
     Indication: OSTEOARTHRITIS
  5. VESICARE [Concomitant]
     Indication: URINARY INCONTINENCE
  6. SYNTHROID [Concomitant]
     Indication: HYPOTHYROIDISM
  7. LANSOPRAZOLE [Concomitant]
     Indication: GASTRIC DISORDER

REACTIONS (2)
  - ALOPECIA [None]
  - WEIGHT INCREASED [None]
